FAERS Safety Report 5311099-2 (Version None)
Quarter: 2007Q2

REPORT INFORMATION
  Report Type: 
  Country: None (occurrence: None)
  Receive Date: 20070427
  Receipt Date: 20070427
  Transmission Date: 20071010
  Serious: Yes (Other)
  Sender: FDA-Public Use
  Company Number: None

PATIENT
  Sex: Female

DRUGS (1)
  1. CHLORAL HYDRATE 500MG/5ML PHARMACEUTICAL ASSOCIATES, INC. [Suspect]
     Indication: SLEEP DISORDER
     Dosage: 2 TEASPOONFULS AT BEDTIME PO
     Route: 048

REACTIONS (2)
  - INSOMNIA [None]
  - PHARMACEUTICAL PRODUCT COMPLAINT [None]
